FAERS Safety Report 16962674 (Version 2)
Quarter: 2019Q4

REPORT INFORMATION
  Report Type: Report from Study
  Country: None (occurrence: JP)
  Receive Date: 20191025
  Receipt Date: 20191204
  Transmission Date: 20200122
  Serious: Yes (Hospitalization)
  Sender: FDA-Public Use
  Company Number: JP-ABBVIE-19P-087-2970524-00

PATIENT
  Age: 53 Year
  Sex: Male
  Weight: 86.8 kg

DRUGS (2)
  1. RISANKIZUMAB [Suspect]
     Active Substance: RISANKIZUMAB
     Indication: PSORIASIS
     Route: 058
     Dates: start: 20170629
  2. MOHRUS TAPE [Concomitant]
     Active Substance: KETOPROFEN
     Indication: ARTHRALGIA
     Route: 061
     Dates: start: 20180821

REACTIONS (1)
  - Pyelonephritis [Recovered/Resolved]

NARRATIVE: CASE EVENT DATE: 20190824
